FAERS Safety Report 16396671 (Version 4)
Quarter: 2019Q4

REPORT INFORMATION
  Report Type: Spontaneous
  Country: IN (occurrence: IN)
  Receive Date: 20190606
  Receipt Date: 20191030
  Transmission Date: 20200122
  Serious: Yes (Other)
  Sender: FDA-Public Use
  Company Number: IN-SUN PHARMACEUTICAL INDUSTRIES LTD-2019R1-209786

PATIENT
  Age: 30 Year
  Sex: Male

DRUGS (4)
  1. PACITANE [Suspect]
     Active Substance: TRIHEXYPHENIDYL HYDROCHLORIDE
     Indication: MUSCLE RIGIDITY
  2. OLEANZ [Suspect]
     Active Substance: OLANZAPINE
     Indication: AGGRESSION
  3. OLEANZ [Suspect]
     Active Substance: OLANZAPINE
     Indication: ACUTE PSYCHOSIS
     Dosage: UNK (UPTITRATED TO 7.5 MG)
     Route: 065
  4. PACITANE [Suspect]
     Active Substance: TRIHEXYPHENIDYL HYDROCHLORIDE
     Indication: TREMOR
     Dosage: 10 MILLIGRAM, UNK
     Route: 065

REACTIONS (5)
  - Catatonia [Unknown]
  - Drug withdrawal syndrome [Unknown]
  - Leukopenia [Unknown]
  - Thrombocytopenia [Unknown]
  - Neuroleptic malignant syndrome [Unknown]
